FAERS Safety Report 24694151 (Version 1)
Quarter: 2024Q4

REPORT INFORMATION
  Report Type: Spontaneous
  Country: US (occurrence: US)
  Receive Date: 20241204
  Receipt Date: 20241204
  Transmission Date: 20250115
  Serious: Yes (Other)
  Sender: GLAND PHARMA LTD
  Company Number: US-GLANDPHARMA-US-2024GLNLIT01070

PATIENT
  Age: 57 Year
  Sex: Male

DRUGS (1)
  1. MITOMYCIN [Suspect]
     Active Substance: MITOMYCIN
     Indication: Pterygium
     Route: 061

REACTIONS (3)
  - Scleral thinning [Recovered/Resolved]
  - Scleral discolouration [Recovered/Resolved]
  - Product use in unapproved indication [Unknown]
